FAERS Safety Report 23336220 (Version 16)
Quarter: 2024Q3

REPORT INFORMATION
  Report Type: Report from Study
  Country: JP (occurrence: JP)
  Receive Date: 20231225
  Receipt Date: 20240924
  Transmission Date: 20241016
  Serious: Yes (Other)
  Sender: ROCHE
  Company Number: JP-CHUGAI-2023043425

PATIENT
  Age: 71 Year
  Sex: Female
  Weight: 42.9 kg

DRUGS (46)
  1. POLIVY [Suspect]
     Active Substance: POLATUZUMAB VEDOTIN-PIIQ
     Indication: Diffuse large B-cell lymphoma
     Dosage: 75 MILLIGRAM
     Route: 065
     Dates: start: 20231127, end: 20231127
  2. POLIVY [Suspect]
     Active Substance: POLATUZUMAB VEDOTIN-PIIQ
     Dosage: 70 MILLIGRAM
     Route: 065
     Dates: start: 20231212, end: 20231212
  3. POLIVY [Suspect]
     Active Substance: POLATUZUMAB VEDOTIN-PIIQ
     Dosage: 70 MILLIGRAM
     Route: 065
     Dates: start: 20240105, end: 20240105
  4. POLIVY [Suspect]
     Active Substance: POLATUZUMAB VEDOTIN-PIIQ
     Dosage: 70 MILLIGRAM
     Route: 065
     Dates: start: 20240126, end: 20240126
  5. POLIVY [Suspect]
     Active Substance: POLATUZUMAB VEDOTIN-PIIQ
     Dosage: 70 MILLIGRAM
     Route: 065
     Dates: start: 20240216, end: 20240216
  6. POLIVY [Suspect]
     Active Substance: POLATUZUMAB VEDOTIN-PIIQ
     Dosage: 70 MILLIGRAM
     Route: 065
     Dates: start: 20240308, end: 20240308
  7. RITUXIMAB [Suspect]
     Active Substance: RITUXIMAB
     Indication: Diffuse large B-cell lymphoma
     Dosage: 540 MILLIGRAM
     Route: 065
     Dates: start: 20231124, end: 20231124
  8. RITUXIMAB [Suspect]
     Active Substance: RITUXIMAB
     Dosage: 530 MILLIGRAM
     Route: 065
     Dates: start: 20231211, end: 20231211
  9. RITUXIMAB [Suspect]
     Active Substance: RITUXIMAB
     Route: 065
     Dates: start: 20240104, end: 20240104
  10. RITUXIMAB [Suspect]
     Active Substance: RITUXIMAB
     Route: 065
     Dates: start: 20240125, end: 20240125
  11. RITUXIMAB [Suspect]
     Active Substance: RITUXIMAB
     Route: 065
     Dates: start: 20240215, end: 20240215
  12. RITUXIMAB [Suspect]
     Active Substance: RITUXIMAB
     Route: 065
     Dates: start: 20240307, end: 20240307
  13. CYCLOPHOSPHAMIDE [Suspect]
     Active Substance: CYCLOPHOSPHAMIDE
     Indication: Diffuse large B-cell lymphoma
     Dosage: 1050 MILLIGRAM
     Route: 065
     Dates: start: 20231120, end: 20231120
  14. CYCLOPHOSPHAMIDE [Suspect]
     Active Substance: CYCLOPHOSPHAMIDE
     Dosage: 1000 MILLIGRAM
     Route: 065
     Dates: start: 20231212, end: 20231212
  15. CYCLOPHOSPHAMIDE [Suspect]
     Active Substance: CYCLOPHOSPHAMIDE
     Route: 065
     Dates: start: 20240105, end: 20240105
  16. CYCLOPHOSPHAMIDE [Suspect]
     Active Substance: CYCLOPHOSPHAMIDE
     Route: 065
     Dates: start: 20240126, end: 20240126
  17. CYCLOPHOSPHAMIDE [Suspect]
     Active Substance: CYCLOPHOSPHAMIDE
     Route: 065
     Dates: start: 20240216, end: 20240216
  18. CYCLOPHOSPHAMIDE [Suspect]
     Active Substance: CYCLOPHOSPHAMIDE
     Route: 065
     Dates: start: 20240308, end: 20240308
  19. DOXORUBICIN HYDROCHLORIDE [Suspect]
     Active Substance: DOXORUBICIN HYDROCHLORIDE
     Indication: Diffuse large B-cell lymphoma
     Dosage: 70 MILLIGRAM
     Route: 065
     Dates: start: 20231120, end: 20231120
  20. DOXORUBICIN HYDROCHLORIDE [Suspect]
     Active Substance: DOXORUBICIN HYDROCHLORIDE
     Dosage: 65 MILLIGRAM
     Route: 065
     Dates: start: 20231212, end: 20231212
  21. DOXORUBICIN HYDROCHLORIDE [Suspect]
     Active Substance: DOXORUBICIN HYDROCHLORIDE
     Route: 065
     Dates: start: 20240105, end: 20240105
  22. DOXORUBICIN HYDROCHLORIDE [Suspect]
     Active Substance: DOXORUBICIN HYDROCHLORIDE
     Route: 065
     Dates: start: 20240126, end: 20240126
  23. DOXORUBICIN HYDROCHLORIDE [Suspect]
     Active Substance: DOXORUBICIN HYDROCHLORIDE
     Route: 065
     Dates: start: 20240216, end: 20240216
  24. DOXORUBICIN HYDROCHLORIDE [Suspect]
     Active Substance: DOXORUBICIN HYDROCHLORIDE
     Route: 065
     Dates: start: 20240308, end: 20240308
  25. PREDNISOLONE [Suspect]
     Active Substance: PREDNISOLONE
     Indication: Diffuse large B-cell lymphoma
     Dosage: 100 MILLIGRAM
     Route: 065
     Dates: start: 20231116, end: 20231120
  26. PREDNISOLONE [Suspect]
     Active Substance: PREDNISOLONE
     Dosage: 16/DEC/2023
     Route: 065
     Dates: start: 20231212, end: 20231216
  27. PREDNISOLONE [Suspect]
     Active Substance: PREDNISOLONE
     Route: 065
     Dates: start: 20240105, end: 20240109
  28. PREDNISOLONE [Suspect]
     Active Substance: PREDNISOLONE
     Route: 065
     Dates: start: 20240126, end: 20240130
  29. PREDNISOLONE [Suspect]
     Active Substance: PREDNISOLONE
     Route: 065
     Dates: start: 20240216, end: 20240220
  30. PREDNISOLONE [Suspect]
     Active Substance: PREDNISOLONE
     Dosage: RECENT DOSE: 12/MAR/2024
     Route: 065
     Dates: start: 20240308, end: 20240312
  31. METHOTREXATE [Concomitant]
     Active Substance: METHOTREXATE
     Dosage: 4600 MILLIGRAM
     Route: 065
     Dates: start: 20240109, end: 20240109
  32. METHOTREXATE [Concomitant]
     Active Substance: METHOTREXATE
     Route: 065
     Dates: start: 20240129, end: 20240129
  33. METHOTREXATE [Concomitant]
     Active Substance: METHOTREXATE
     Route: 065
     Dates: start: 20240219, end: 20240219
  34. METHOTREXATE [Concomitant]
     Active Substance: METHOTREXATE
     Dates: start: 20240110, end: 20240110
  35. METHOTREXATE [Concomitant]
     Active Substance: METHOTREXATE
     Dates: start: 20240129, end: 20240129
  36. METHOTREXATE [Concomitant]
     Active Substance: METHOTREXATE
     Dates: start: 20240219, end: 20240219
  37. CYTARABINE [Concomitant]
     Active Substance: CYTARABINE
     Dosage: 40 MILLIGRAM/DAY
     Dates: start: 20240110, end: 20240110
  38. CYTARABINE [Concomitant]
     Active Substance: CYTARABINE
     Dosage: 40 MILLIGRAM/DAY
     Dates: start: 20240129, end: 20240129
  39. CYTARABINE [Concomitant]
     Active Substance: CYTARABINE
     Dosage: 40 MILLIGRAM/DAY
     Dates: start: 20240219, end: 20240219
  40. PREDNISOLONE ACETATE [Concomitant]
     Active Substance: PREDNISOLONE ACETATE
     Dosage: 20 MILLIGRAM/DAY
     Dates: start: 20240110, end: 20240110
  41. PREDNISOLONE ACETATE [Concomitant]
     Active Substance: PREDNISOLONE ACETATE
     Dosage: 20 MILLIGRAM/DAY
     Dates: start: 20240129, end: 20240129
  42. PREDNISOLONE ACETATE [Concomitant]
     Active Substance: PREDNISOLONE ACETATE
     Dosage: 20 MILLIGRAM/DAY
     Dates: start: 20240219, end: 20240219
  43. FILGRASTIM [Concomitant]
     Active Substance: FILGRASTIM
  44. RITUXAN [Concomitant]
     Active Substance: RITUXIMAB
     Indication: Diffuse large B-cell lymphoma
     Dosage: 510 MILLIGRAM
     Route: 065
     Dates: start: 20240104, end: 20240104
  45. RITUXAN [Concomitant]
     Active Substance: RITUXIMAB
     Dosage: 510 MILLIGRAM
     Route: 065
     Dates: start: 20240125, end: 20240125
  46. RITUXAN [Concomitant]
     Active Substance: RITUXIMAB
     Dosage: 510 MILLIGRAM
     Route: 065
     Dates: start: 20240215, end: 20240215

REACTIONS (7)
  - Pharyngitis [Recovering/Resolving]
  - White blood cell count decreased [Recovering/Resolving]
  - Neutrophil count decreased [Recovering/Resolving]
  - Febrile neutropenia [Recovering/Resolving]
  - Decreased appetite [Recovering/Resolving]
  - Platelet count decreased [Recovering/Resolving]
  - Anaemia [Recovering/Resolving]

NARRATIVE: CASE EVENT DATE: 20231127
